FAERS Safety Report 24114903 (Version 1)
Quarter: 2024Q3

REPORT INFORMATION
  Report Type: Spontaneous
  Country: US (occurrence: US)
  Receive Date: 20240721
  Receipt Date: 20240721
  Transmission Date: 20241017
  Serious: No
  Sender: NOVO NORDISK
  Company Number: US-NOVOPROD-1152000

PATIENT
  Age: 38 Year
  Sex: Female

DRUGS (1)
  1. WEGOVY [Suspect]
     Active Substance: SEMAGLUTIDE
     Indication: Product used for unknown indication
     Dosage: 2.4
     Route: 058
     Dates: start: 20231002

REACTIONS (6)
  - Binge eating [Unknown]
  - Increased appetite [Unknown]
  - Weight increased [Unknown]
  - Injection site pain [Recovered/Resolved]
  - Weight loss poor [Recovered/Resolved]
  - Product quality issue [Unknown]

NARRATIVE: CASE EVENT DATE: 20231112
